FAERS Safety Report 8519339-3 (Version None)
Quarter: 2012Q3

REPORT INFORMATION
  Report Type: 
  Country: None (occurrence: None)
  Receive Date: 20120718
  Receipt Date: 20120706
  Transmission Date: 20120928
  Serious: Yes (Hospitalization)
  Sender: FDA-Public Use
  Company Number: ES-NOVEN-12ES004929

PATIENT
  Age: 81 Year
  Sex: Female

DRUGS (2)
  1. UNKNOWN [Concomitant]
  2. PAROXETINE [Suspect]
     Indication: DEPRESSION
     Dosage: 10 MG, QD
     Route: 048

REACTIONS (5)
  - ASTHENIA [None]
  - SOMNOLENCE [None]
  - INAPPROPRIATE ANTIDIURETIC HORMONE SECRETION [None]
  - GENERAL PHYSICAL HEALTH DETERIORATION [None]
  - ANAEMIA [None]
